FAERS Safety Report 18952577 (Version 1)
Quarter: 2021Q1

REPORT INFORMATION
  Report Type: Other
  Country: US (occurrence: US)
  Receive Date: 20210301
  Receipt Date: 20210301
  Transmission Date: 20210420
  Serious: Yes (Life-Threatening, Hospitalization)
  Sender: FDA-Public Use
  Company Number: US-DEXPHARM-20210169

PATIENT
  Age: 16 Year
  Sex: Female

DRUGS (7)
  1. DICLOFENAC [Suspect]
     Active Substance: DICLOFENAC
  2. CEFPROZIL. [Suspect]
     Active Substance: CEFPROZIL
  3. FLURBIPROFEN. [Suspect]
     Active Substance: FLURBIPROFEN
  4. CEFDINIR. [Suspect]
     Active Substance: CEFDINIR
  5. AMPICILLIN [Suspect]
     Active Substance: AMPICILLIN
  6. THIOCOLCHICOSIDE [Suspect]
     Active Substance: THIOCOLCHICOSIDE
  7. CHLORPHENAMINE/OXOLAMINE/PARACETAMOL [Suspect]
     Active Substance: ACETAMINOPHEN\CHLORPHENIRAMINE\OXOLAMINE

REACTIONS (1)
  - Toxicity to various agents [Recovering/Resolving]
